FAERS Safety Report 14062081 (Version 1)
Quarter: 2017Q4

REPORT INFORMATION
  Report Type: Spontaneous
  Country: US (occurrence: US)
  Receive Date: 20171009
  Receipt Date: 20171009
  Transmission Date: 20180321
  Serious: Yes (Other)
  Sender: FDA-Public Use
  Company Number: US-PFIZER INC-2017428709

PATIENT
  Age: 47 Year
  Sex: Male

DRUGS (1)
  1. EMBEDA [Suspect]
     Active Substance: MORPHINE SULFATE\NALTREXONE HYDROCHLORIDE
     Dosage: 20 MG, 1X/DAY
     Route: 048
     Dates: start: 20170909, end: 20171003

REACTIONS (6)
  - Headache [Unknown]
  - Skin discolouration [Unknown]
  - Skin exfoliation [Unknown]
  - Mass [Unknown]
  - Respiratory depression [Unknown]
  - Joint stiffness [Unknown]
